FAERS Safety Report 25319463 (Version 1)
Quarter: 2025Q2

REPORT INFORMATION
  Report Type: Spontaneous
  Country: US (occurrence: US)
  Receive Date: 20250515
  Receipt Date: 20250515
  Transmission Date: 20250716
  Serious: No
  Sender: AVERITAS
  Company Number: US-GRUNENTHAL-2025-106864

PATIENT
  Sex: Male

DRUGS (1)
  1. QUTENZA [Suspect]
     Active Substance: CAPSAICIN
     Indication: Diabetic neuropathy
     Route: 061
     Dates: start: 202503, end: 202503

REACTIONS (3)
  - Pain in extremity [Unknown]
  - Burning sensation [Unknown]
  - Limb discomfort [Unknown]
